FAERS Safety Report 6263996-1 (Version None)
Quarter: 2009Q3

REPORT INFORMATION
  Report Type: 
  Country: None (occurrence: None)
  Receive Date: 20090703
  Receipt Date: 20090703
  Transmission Date: 20100115
  Serious: No
  Sender: FDA-Public Use
  Company Number: None

PATIENT
  Age: 68 Year
  Sex: Female
  Weight: 99.7913 kg

DRUGS (1)
  1. ZICAM RAPID MELTS [Suspect]
     Indication: INFLUENZA
     Dosage: 1 TABLET EA 3 HOURS
     Dates: start: 20090102, end: 20090102

REACTIONS (2)
  - AGEUSIA [None]
  - ANOSMIA [None]
